FAERS Safety Report 24985949 (Version 1)
Quarter: 2025Q1

REPORT INFORMATION
  Report Type: Spontaneous
  Country: IN (occurrence: IN)
  Receive Date: 20250219
  Receipt Date: 20250219
  Transmission Date: 20250409
  Serious: Yes (Hospitalization)
  Sender: PERRIGO
  Company Number: IN-MLMSERVICE-20250207-PI399658-00029-1

PATIENT
  Age: 35 Year
  Sex: Male

DRUGS (2)
  1. ACETAMINOPHEN [Suspect]
     Active Substance: ACETAMINOPHEN
     Indication: Postoperative analgesia
     Route: 048
  2. DICYCLOMINE [Suspect]
     Active Substance: DICYCLOMINE HYDROCHLORIDE
     Indication: Postoperative analgesia
     Route: 065

REACTIONS (5)
  - Sleep disorder [Unknown]
  - Decreased appetite [Unknown]
  - Dizziness [Unknown]
  - Drug abuse [Unknown]
  - Drug dependence [Unknown]
